FAERS Safety Report 5128082-2 (Version None)
Quarter: 2006Q4

REPORT INFORMATION
  Report Type: 
  Country: None (occurrence: None)
  Receive Date: 20061010
  Receipt Date: 20061002
  Transmission Date: 20070319
  Serious: Yes (Other)
  Sender: FDA-Public Use
  Company Number: HQWYE738229SEP05

PATIENT
  Age: 18 Year
  Sex: Female

DRUGS (3)
  1. RAPAMUNE [Suspect]
     Indication: IMMUNOSUPPRESSANT DRUG THERAPY
     Dosage: A MEAN DOSE OF 2.4 MG/M^2 PER DAY WITH A MEAN TROUGH LEVEL 9.9 MCG/L
  2. MYCOPHENOLATE MOFETIL (MYCHOPHENOLATE MOFETIL) [Concomitant]
  3. METHYLPREDNISOLONE [Concomitant]

REACTIONS (6)
  - DISEASE RECURRENCE [None]
  - FOCAL GLOMERULOSCLEROSIS [None]
  - KIDNEY TRANSPLANT REJECTION [None]
  - NEPHROPATHY TOXIC [None]
  - NEPHROTIC SYNDROME [None]
  - PROTEINURIA [None]
